FAERS Safety Report 8832991 (Version 1)
Quarter: 2012Q4

REPORT INFORMATION
  Report Type: 
  Country: JP (occurrence: JP)
  Receive Date: 20121010
  Receipt Date: 20121010
  Transmission Date: 20130627
  Serious: Yes (Hospitalization)
  Sender: FDA-Public Use
  Company Number: JP-ACTELION-A-CH2012-72441

PATIENT
  Age: 40 Year
  Sex: Female

DRUGS (2)
  1. TRACLEER [Suspect]
     Indication: PULMONARY ARTERIAL HYPERTENSION
     Dosage: UNK mg, UNK
     Route: 048
     Dates: start: 200704
  2. PREDNISOLONE [Concomitant]

REACTIONS (4)
  - Protein-losing gastroenteropathy [Unknown]
  - Hypoproteinaemia [Unknown]
  - Oedema [Unknown]
  - Protein urine present [Unknown]
